FAERS Safety Report 15962056 (Version 1)
Quarter: 2019Q1

REPORT INFORMATION
  Report Type: Spontaneous
  Country: IT (occurrence: IT)
  Receive Date: 20190214
  Receipt Date: 20190214
  Transmission Date: 20190417
  Serious: Yes (Hospitalization)
  Sender: FDA-Public Use
  Company Number: IT-TEVA-2019-IT-1011056

PATIENT
  Age: 63 Year
  Sex: Male

DRUGS (1)
  1. CARBOLITHIUM 300 MG CAPSULE RIGIDE [Suspect]
     Active Substance: LITHIUM CARBONATE
     Indication: MENTAL DISORDER
     Dosage: 1800 MILLIGRAM DAILY;
     Route: 048
     Dates: start: 20190109, end: 20190117

REACTIONS (4)
  - Depressed level of consciousness [Recovering/Resolving]
  - Sopor [Recovering/Resolving]
  - Antipsychotic drug level increased [Recovering/Resolving]
  - Medication error [Recovering/Resolving]

NARRATIVE: CASE EVENT DATE: 20190118
